FAERS Safety Report 5509618-6 (Version None)
Quarter: 2007Q4

REPORT INFORMATION
  Report Type: 
  Country: None (occurrence: None)
  Receive Date: 20071107
  Receipt Date: 20071107
  Transmission Date: 20080405
  Serious: Yes (Other)
  Sender: FDA-Public Use
  Company Number: None

PATIENT
  Age: 73 Year
  Sex: Female
  Weight: 83.9154 kg

DRUGS (8)
  1. BONIVA [Suspect]
     Dosage: 3 MG Q 3 MOS IV
     Route: 042
     Dates: start: 20070822
  2. ZETIA [Concomitant]
  3. CEREFOLIN NAC [Concomitant]
  4. GLUCOPHAGE [Concomitant]
  5. DIOVAN [Concomitant]
  6. NEXIUM [Concomitant]
  7. FISH OIL [Concomitant]
  8. CA + D [Concomitant]

REACTIONS (3)
  - BONE PAIN [None]
  - DYSPEPSIA [None]
  - ERUCTATION [None]
